FAERS Safety Report 5013099-9 (Version None)
Quarter: 2006Q2

REPORT INFORMATION
  Report Type: 
  Country: None (occurrence: None)
  Receive Date: 20060530
  Receipt Date: 20060223
  Transmission Date: 20061013
  Serious: No
  Sender: FDA-Public Use
  Company Number: US-GLAXOSMITHKLINE-A0594988A

PATIENT
  Age: 29 Year
  Sex: Female
  Weight: 103.2 kg

DRUGS (4)
  1. WELLBUTRIN XL [Suspect]
     Indication: DEPRESSION
     Dosage: 150MG TWICE PER DAY
     Route: 048
     Dates: start: 20060106, end: 20060203
  2. NEXIUM [Concomitant]
     Dosage: 40MG PER DAY
     Route: 048
     Dates: start: 20051013, end: 20060109
  3. NAPROSYN [Concomitant]
     Indication: GOUT
     Dosage: 550MG TWICE PER DAY
     Route: 048
     Dates: start: 20051229
  4. YASMIN [Concomitant]
     Indication: CONTRACEPTION
     Dosage: 1TAB PER DAY
     Route: 048
     Dates: start: 20040101

REACTIONS (1)
  - ANGER [None]
